FAERS Safety Report 6498250-6 (Version None)
Quarter: 2009Q4

REPORT INFORMATION
  Report Type: 
  Country: None (occurrence: None)
  Receive Date: 20091215
  Receipt Date: 20091207
  Transmission Date: 20100525
  Serious: Yes (Hospitalization, Other)
  Sender: FDA-Public Use
  Company Number: B0597998A

PATIENT
  Age: 60 Year
  Sex: Male

DRUGS (6)
  1. PAXIL [Suspect]
     Indication: DEPRESSION
     Dosage: 10MG UNKNOWN
     Route: 048
  2. PAXIL [Suspect]
     Dosage: 30MG UNKNOWN
     Route: 048
  3. LORAZEPAM [Suspect]
     Route: 048
  4. VALPROATE SODIUM [Concomitant]
     Route: 048
  5. CLONAZEPAM [Concomitant]
     Route: 048
  6. MIANSERIN HYDROCHLORIDE [Concomitant]
     Route: 048

REACTIONS (8)
  - CHILLS [None]
  - DIARRHOEA [None]
  - HYPERHIDROSIS [None]
  - HYPERREFLEXIA [None]
  - IRRITABILITY [None]
  - PYREXIA [None]
  - SEROTONIN SYNDROME [None]
  - TACHYCARDIA [None]
